FAERS Safety Report 5011931-6 (Version None)
Quarter: 2006Q2

REPORT INFORMATION
  Report Type: 
  Country: None (occurrence: None)
  Receive Date: 20060526
  Receipt Date: 20060427
  Transmission Date: 20061013
  Serious: Yes (Other)
  Sender: FDA-Public Use
  Company Number: CA-ROCHE-446098

PATIENT
  Age: 15 Year
  Sex: Male

DRUGS (2)
  1. ACCUTANE [Suspect]
     Indication: ACNE
     Route: 048
     Dates: start: 20060227, end: 20060330
  2. ACCUTANE [Suspect]
     Route: 048
     Dates: start: 20060330, end: 20060426

REACTIONS (2)
  - COORDINATION ABNORMAL [None]
  - DIZZINESS [None]
